FAERS Safety Report 9607374 (Version 1)
Quarter: 2013Q4

REPORT INFORMATION
  Report Type: Spontaneous
  Country: US (occurrence: None)
  Receive Date: 20131007
  Receipt Date: 20131007
  Transmission Date: 20140711
  Serious: Yes (Other)
  Sender: FDA-Public Use
  Company Number: None

PATIENT
  Age: 42 Year
  Sex: Female
  Weight: 72.58 kg

DRUGS (1)
  1. CIPROFLOXACIN [Suspect]
     Indication: URINARY TRACT INFECTION
     Dosage: 1, TWICE DAILY, TAKEN BY MOUTH
     Route: 048
     Dates: start: 20131002, end: 20131005

REACTIONS (4)
  - Oropharyngeal pain [None]
  - Dizziness [None]
  - Initial insomnia [None]
  - Eye irritation [None]
